FAERS Safety Report 6312465-9 (Version None)
Quarter: 2009Q3

REPORT INFORMATION
  Report Type: 
  Country: None (occurrence: None)
  Receive Date: 20090813
  Receipt Date: 20090807
  Transmission Date: 20100115
  Serious: Yes (Life-Threatening)
  Sender: FDA-Public Use
  Company Number: 2009AL005260

PATIENT
  Age: 73 Year
  Sex: Female

DRUGS (4)
  1. EPIRUBICIN HCL [Suspect]
  2. CATUMAXOMAB [Concomitant]
  3. CAPECITABINE [Concomitant]
  4. CISPLATIN [Concomitant]

REACTIONS (5)
  - DIARRHOEA [None]
  - NAUSEA [None]
  - PNEUMONIA [None]
  - VOMITING [None]
  - WEIGHT DECREASED [None]
